FAERS Safety Report 16634606 (Version 4)
Quarter: 2021Q2

REPORT INFORMATION
  Report Type: Other
  Country: CA (occurrence: CA)
  Receive Date: 20190726
  Receipt Date: 20210414
  Transmission Date: 20210716
  Serious: Yes (Hospitalization, Other)
  Sender: FDA-Public Use
  Company Number: CA-ROCHE-2079444

PATIENT
  Age: 74 Year
  Sex: Male
  Weight: 85 kg

DRUGS (26)
  1. METRONIDAZOLE. [Concomitant]
     Active Substance: METRONIDAZOLE
  2. TESTOSTERONE. [Concomitant]
     Active Substance: TESTOSTERONE
  3. SODIUM BICARBONATE. [Concomitant]
     Active Substance: SODIUM BICARBONATE
     Dosage: FOR 1?2 MONTHS
  4. LASIX [Concomitant]
     Active Substance: FUROSEMIDE
  5. NITRO PATCH [Concomitant]
     Active Substance: NITROGLYCERIN
  6. ZAROXOLYN [Concomitant]
     Active Substance: METOLAZONE
  7. ACETAMINOPHEN. [Concomitant]
     Active Substance: ACETAMINOPHEN
     Indication: PREMEDICATION
     Route: 048
     Dates: start: 20171020
  8. METHYLPREDNISOLONE. [Concomitant]
     Active Substance: METHYLPREDNISOLONE
     Route: 042
     Dates: start: 20190917
  9. HYDROXYLYSINE [Concomitant]
     Indication: PRODUCT USED FOR UNKNOWN INDICATION
  10. ACETYLSALICYLIC ACID [Concomitant]
     Active Substance: ASPIRIN
  11. TRAMADOL. [Concomitant]
     Active Substance: TRAMADOL
     Dosage: OR ACETAMINOPHEN
  12. INSULIN [Concomitant]
     Active Substance: INSULIN NOS
  13. WARFARIN [Concomitant]
     Active Substance: WARFARIN
  14. RITUXAN [Suspect]
     Active Substance: RITUXIMAB
     Indication: RHEUMATOID ARTHRITIS
     Dosage: DAY 1 AND DAY 15
     Route: 042
     Dates: start: 20171020, end: 20191003
  15. ATORVASTATIN [Concomitant]
     Active Substance: ATORVASTATIN
  16. METHYLPREDNISOLONE. [Concomitant]
     Active Substance: METHYLPREDNISOLONE
     Indication: PREMEDICATION
     Route: 042
     Dates: start: 20171020
  17. PREDNISONE. [Concomitant]
     Active Substance: PREDNISONE
  18. TERAZOSIN [Concomitant]
     Active Substance: TERAZOSIN HYDROCHLORIDE
     Indication: HYPERTENSION
  19. DIPHENHYDRAMINE HCL [Concomitant]
     Active Substance: DIPHENHYDRAMINE HYDROCHLORIDE
     Indication: PREMEDICATION
     Route: 048
     Dates: start: 20171020
  20. TYLENOL [Concomitant]
     Active Substance: ACETAMINOPHEN
  21. AMLODIPINE [Concomitant]
     Active Substance: AMLODIPINE BESYLATE
  22. IRON [Concomitant]
     Active Substance: IRON
  23. RINVOQ [Concomitant]
     Active Substance: UPADACITINIB
     Indication: PRODUCT USED FOR UNKNOWN INDICATION
     Route: 065
  24. BISOPROLOL [Concomitant]
     Active Substance: BISOPROLOL
     Indication: HYPERTENSION
  25. PANTOPRAZOLE [Concomitant]
     Active Substance: PANTOPRAZOLE
  26. TRAMADOL/ACETAMINOPHEN [Concomitant]
     Active Substance: ACETAMINOPHEN\TRAMADOL

REACTIONS (16)
  - Deep vein thrombosis [Not Recovered/Not Resolved]
  - Joint swelling [Not Recovered/Not Resolved]
  - Osteomyelitis acute [Not Recovered/Not Resolved]
  - Cough [Recovering/Resolving]
  - Prostatic disorder [Unknown]
  - Arthralgia [Not Recovered/Not Resolved]
  - Urinary tract infection [Recovered/Resolved]
  - Renal failure [Unknown]
  - Blood pressure systolic increased [Unknown]
  - Rhinorrhoea [Recovering/Resolving]
  - Weight decreased [Unknown]
  - Musculoskeletal stiffness [Not Recovered/Not Resolved]
  - Blood pressure increased [Unknown]
  - Osteomyelitis [Recovered/Resolved]
  - Hypogammaglobulinaemia [Unknown]
  - Blood pressure diastolic abnormal [Unknown]

NARRATIVE: CASE EVENT DATE: 2018
